FAERS Safety Report 4505074-5 (Version None)
Quarter: 2004Q4

REPORT INFORMATION
  Report Type: 
  Country: None (occurrence: None)
  Receive Date: 20041117
  Receipt Date: 20041117
  Transmission Date: 20050328
  Serious: Yes (Hospitalization)
  Sender: FDA-Public Use
  Company Number: None

PATIENT
  Age: 80 Year
  Sex: Male

DRUGS (3)
  1. FUROSEMIDE [Suspect]
     Dosage: 20 MG QD
     Dates: start: 20040709
  2. GATIFLOXACIN [Concomitant]
  3. KCL TAB [Concomitant]

REACTIONS (1)
  - HYPONATRAEMIA [None]
